FAERS Safety Report 6087272-5 (Version None)
Quarter: 2009Q1

REPORT INFORMATION
  Report Type: 
  Country: None (occurrence: None)
  Receive Date: 20090219
  Receipt Date: 20090205
  Transmission Date: 20090719
  Serious: Yes (Other)
  Sender: FDA-Public Use
  Company Number: 236835J08USA

PATIENT
  Age: 24 Year
  Sex: Female

DRUGS (3)
  1. REBIF [Suspect]
     Indication: MULTIPLE SCLEROSIS
     Dosage: 44 MCG, 3 IN 1 WEEKS, SUBCUTANEOUS 22 MCG, 3 IN 1 WEEKS, NOT REPORTED
     Route: 058
     Dates: start: 20080519, end: 20080101
  2. REBIF [Suspect]
     Indication: MULTIPLE SCLEROSIS
     Dosage: 44 MCG, 3 IN 1 WEEKS, SUBCUTANEOUS 22 MCG, 3 IN 1 WEEKS, NOT REPORTED
     Route: 058
     Dates: start: 20080101
  3. UNSPECIFIED PAIN RELIEVER MEDICATION (ALL OTHER NON-THERAPEUTIC PRODUC [Concomitant]

REACTIONS (2)
  - CEREBROVASCULAR ACCIDENT [None]
  - INFLUENZA LIKE ILLNESS [None]
